FAERS Safety Report 10919783 (Version 1)
Quarter: 2015Q1

REPORT INFORMATION
  Report Type: Report from Study
  Country: US (occurrence: US)
  Receive Date: 20150317
  Receipt Date: 20150317
  Transmission Date: 20150721
  Serious: No
  Sender: FDA-Public Use
  Company Number: US-AMGEN-USASL2015022441

PATIENT
  Age: 57 Year
  Sex: Male

DRUGS (1)
  1. ENBREL [Suspect]
     Active Substance: ETANERCEPT
     Indication: PSORIATIC ARTHROPATHY
     Dosage: 50 MG, ONCE A WEEK
     Route: 065
     Dates: start: 20040201

REACTIONS (5)
  - Rhinorrhoea [Recovered/Resolved]
  - Pain [Not Recovered/Not Resolved]
  - Neck pain [Not Recovered/Not Resolved]
  - Arthralgia [Not Recovered/Not Resolved]
  - Viral infection [Recovered/Resolved]

NARRATIVE: CASE EVENT DATE: 201502
